FAERS Safety Report 11855478 (Version 1)
Quarter: 2015Q4

REPORT INFORMATION
  Report Type: Spontaneous
  Country: FR (occurrence: FR)
  Receive Date: 20151221
  Receipt Date: 20151221
  Transmission Date: 20160305
  Serious: Yes (Hospitalization)
  Sender: FDA-Public Use
  Company Number: FR-EMD SERONO-8060387

PATIENT
  Age: 42 Year
  Sex: Female

DRUGS (5)
  1. LOVENOX [Concomitant]
     Active Substance: ENOXAPARIN SODIUM
     Indication: PROPHYLAXIS
  2. MENOPUR [Suspect]
     Active Substance: FOLLICLE STIMULATING HORMONE BETA POLYPEPTIDE\LUTROPIN ALFA
     Indication: ASSISTED FERTILISATION
     Dosage: 225 (UNSPECIFIED UNITS) POWDER AND SOLVENT FOR SOLUTION FOR INJECTION
     Dates: start: 20150701, end: 20150712
  3. OVITRELLE [Suspect]
     Active Substance: CHORIOGONADOTROPIN ALFA
     Indication: ASSISTED FERTILISATION
     Dates: start: 20150713, end: 20150713
  4. DOSTINEX [Suspect]
     Active Substance: CABERGOLINE
     Indication: ASSISTED FERTILISATION
  5. DECAPEPTYL [Suspect]
     Active Substance: TRIPTORELIN ACETATE
     Indication: ASSISTED FERTILISATION
     Dosage: POWDER AND SOLVENT FOR SOLUTION FOR INJECTION
     Route: 058
     Dates: start: 20150617, end: 20150712

REACTIONS (2)
  - Faecaloma [Recovered/Resolved]
  - Constipation [Recovered/Resolved]

NARRATIVE: CASE EVENT DATE: 20150720
